FAERS Safety Report 10967470 (Version 1)
Quarter: 2015Q1

REPORT INFORMATION
  Report Type: Spontaneous
  Country: FR (occurrence: FR)
  Receive Date: 20150330
  Receipt Date: 20150330
  Transmission Date: 20150721
  Serious: Yes (Hospitalization)
  Sender: FDA-Public Use
  Company Number: FR-PFIZER INC-2015105119

PATIENT
  Age: 44 Year
  Sex: Male

DRUGS (7)
  1. EFFEXOR [Suspect]
     Active Substance: VENLAFAXINE HYDROCHLORIDE
     Indication: DEPRESSION
     Dosage: 37.5 MG, 1X/DAY
     Route: 048
     Dates: end: 20150219
  2. AUGMENTIN [Concomitant]
     Active Substance: AMOXICILLIN\CLAVULANATE POTASSIUM
     Dosage: UNK
     Route: 048
     Dates: start: 20150202, end: 20150203
  3. FUNGIZONE [Concomitant]
     Active Substance: AMPHOTERICIN B
     Dosage: 1 DF, 1X/DAY
     Route: 048
     Dates: start: 20150204, end: 20150210
  4. INNOHEP [Concomitant]
     Active Substance: TINZAPARIN SODIUM
     Dosage: 0.8 ML, 1X/DAY
     Route: 058
     Dates: start: 20150210
  5. OMEPRAZOLE. [Suspect]
     Active Substance: OMEPRAZOLE
     Dosage: 20 MG, 1X/DAY
     Route: 048
     Dates: end: 20150219
  6. LEXOMIL [Concomitant]
     Active Substance: BROMAZEPAM
     Dosage: 6 MG, AS NEEDED
     Dates: end: 20150219
  7. GAVISCON [Concomitant]
     Active Substance: ALUMINUM HYDROXIDE\MAGNESIUM CARBONATE
     Dosage: 1 DF, 3X/DAY
     Route: 048

REACTIONS (6)
  - Hepatitis cholestatic [Recovering/Resolving]
  - Hepatic steatosis [Recovering/Resolving]
  - Decreased appetite [Unknown]
  - Jaundice [Recovering/Resolving]
  - Pruritus [Unknown]
  - Asthenia [Unknown]

NARRATIVE: CASE EVENT DATE: 201502
